FAERS Safety Report 13978123 (Version 3)
Quarter: 2017Q4

REPORT INFORMATION
  Report Type: Report from Study
  Country: None (occurrence: US)
  Receive Date: 20170914
  Receipt Date: 20171221
  Transmission Date: 20180321
  Serious: Yes (Congenital Anomaly, Other)
  Sender: FDA-Public Use
  Company Number: US-ABBVIE-17P-163-2098236-00

PATIENT
  Age: 71 Year
  Sex: Male

DRUGS (5)
  1. VENCLEXTA [Suspect]
     Active Substance: VENETOCLAX
     Indication: CHRONIC LYMPHOCYTIC LEUKAEMIA
     Route: 048
     Dates: start: 20160418
  2. VENCLEXTA [Suspect]
     Active Substance: VENETOCLAX
     Route: 048
  3. VENCLEXTA [Suspect]
     Active Substance: VENETOCLAX
     Route: 048
  4. VENCLEXTA [Suspect]
     Active Substance: VENETOCLAX
     Route: 048
  5. VENCLEXTA [Suspect]
     Active Substance: VENETOCLAX
     Route: 048

REACTIONS (4)
  - Basal cell carcinoma [Not Recovered/Not Resolved]
  - Squamous cell carcinoma [Not Recovered/Not Resolved]
  - Squamous cell carcinoma of skin [Unknown]
  - Therapeutic response unexpected [Recovering/Resolving]

NARRATIVE: CASE EVENT DATE: 201604
